FAERS Safety Report 24877729 (Version 1)
Quarter: 2025Q1

REPORT INFORMATION
  Report Type: Report from Study
  Country: US (occurrence: US)
  Receive Date: 20250123
  Receipt Date: 20250123
  Transmission Date: 20250409
  Serious: Yes (Other)
  Sender: ALEXION PHARMACEUTICALS
  Company Number: US-AstraZeneca-CH-00788134A

PATIENT

DRUGS (1)
  1. EXENATIDE [Suspect]
     Active Substance: EXENATIDE
     Route: 065

REACTIONS (1)
  - Multiple fractures [Unknown]
